FAERS Safety Report 7727610-8 (Version None)
Quarter: 2011Q3

REPORT INFORMATION
  Report Type: 
  Country: None (occurrence: None)
  Receive Date: 20110902
  Receipt Date: 20110822
  Transmission Date: 20111222
  Serious: Yes (Other)
  Sender: FDA-Public Use
  Company Number: PHHY2011BE75189

PATIENT
  Age: 46 Year

DRUGS (1)
  1. CERTICAN [Suspect]
     Indication: RENAL TRANSPLANT

REACTIONS (9)
  - DEHYDRATION [None]
  - PAIN IN EXTREMITY [None]
  - RENAL IMPAIRMENT [None]
  - WEIGHT INCREASED [None]
  - LOSS OF PROPRIOCEPTION [None]
  - HYPOVOLAEMIA [None]
  - GAIT DISTURBANCE [None]
  - OEDEMA PERIPHERAL [None]
  - HYPOTENSION [None]
